FAERS Safety Report 4877134-0 (Version None)
Quarter: 2005Q4

REPORT INFORMATION
  Report Type: 
  Country: None (occurrence: None)
  Receive Date: 20051206
  Receipt Date: 20050929
  Transmission Date: 20060501
  Serious: No
  Sender: FDA-Public Use
  Company Number: USA0508106367

PATIENT
  Age: 56 Year
  Sex: Female
  Weight: 61 kg

DRUGS (3)
  1. CYMBALTA [Suspect]
     Indication: BACK PAIN
     Dosage: 60 MG DAY
     Dates: start: 20050720
  2. FLUOXETINE [Concomitant]
  3. ASPIRIN [Concomitant]

REACTIONS (5)
  - ANXIETY [None]
  - BLOOD PRESSURE INCREASED [None]
  - DRUG INEFFECTIVE [None]
  - FEELING ABNORMAL [None]
  - NAUSEA [None]
